FAERS Safety Report 6814829-3 (Version None)
Quarter: 2010Q3

REPORT INFORMATION
  Report Type: 
  Country: None (occurrence: None)
  Receive Date: 20100702
  Receipt Date: 20100624
  Transmission Date: 20110219
  Serious: Yes (Hospitalization)
  Sender: FDA-Public Use
  Company Number: A0868019A

PATIENT
  Age: 79 Year
  Sex: Male

DRUGS (1)
  1. AVANDIA [Suspect]
     Route: 048

REACTIONS (1)
  - CARDIAC DISORDER [None]
